FAERS Safety Report 15689833 (Version 1)
Quarter: 2018Q4

REPORT INFORMATION
  Report Type: Spontaneous
  Country: ES (occurrence: ES)
  Receive Date: 20181205
  Receipt Date: 20181205
  Transmission Date: 20190205
  Serious: Yes (Other)
  Sender: FDA-Public Use
  Company Number: ES-ASTRAZENECA-2018SF56649

PATIENT
  Age: 79 Year
  Sex: Female

DRUGS (1)
  1. IRESSA [Suspect]
     Active Substance: GEFITINIB
     Indication: LUNG CARCINOMA CELL TYPE UNSPECIFIED STAGE IV
     Route: 048
     Dates: start: 201807, end: 201811

REACTIONS (6)
  - Peripheral swelling [Unknown]
  - Diarrhoea [Unknown]
  - Rash [Unknown]
  - Drug ineffective [Unknown]
  - Gait disturbance [Unknown]
  - Pain in extremity [Unknown]
